FAERS Safety Report 7137558-8 (Version None)
Quarter: 2010Q4

REPORT INFORMATION
  Report Type: 
  Country: None (occurrence: None)
  Receive Date: 20101206
  Receipt Date: 20101122
  Transmission Date: 20110411
  Serious: Yes (Hospitalization, Other)
  Sender: FDA-Public Use
  Company Number: DE-ELI_LILLY_AND_COMPANY-DE201011005891

PATIENT
  Age: 43 Year
  Sex: Male

DRUGS (17)
  1. ZYPREXA [Suspect]
     Indication: BIPOLAR I DISORDER
     Dosage: 10 MG, DAILY (1/D)
     Route: 048
     Dates: start: 20100427, end: 20100429
  2. ZYPREXA [Suspect]
     Dosage: 10 MG, DAILY (1/D)
     Route: 048
     Dates: start: 20100504, end: 20100505
  3. ZYPREXA [Suspect]
     Dosage: 20 MG, DAILY (1/D)
     Route: 048
     Dates: start: 20100506, end: 20100528
  4. ERGENYL [Concomitant]
     Indication: SCHIZOAFFECTIVE DISORDER
     Dosage: UNK, DAILY (1/D)
     Route: 048
     Dates: start: 20100519
  5. ERGENYL [Concomitant]
     Dosage: 1200 MG, DAILY (1/D)
     Route: 048
  6. LORAZEPAM [Concomitant]
     Dosage: 25 MG, DAILY (1/D)
     Route: 048
     Dates: start: 20100427
  7. LORAZEPAM [Concomitant]
     Dosage: 75 MG, DAILY (1/D)
     Route: 048
     Dates: end: 20100503
  8. DIAZEPAM [Concomitant]
     Dosage: 15 MG, DAILY (1/D)
     Route: 048
     Dates: start: 20100504, end: 20100507
  9. DIAZEPAM [Concomitant]
     Dosage: 5 MG, DAILY (1/D)
     Route: 048
     Dates: start: 20100508, end: 20100511
  10. DIAZEPAM [Concomitant]
     Dosage: 20 MG, DAILY (1/D)
     Route: 048
     Dates: start: 20100512, end: 20100527
  11. DIAZEPAM [Concomitant]
     Dosage: 15 MG, DAILY (1/D)
     Route: 048
     Dates: start: 20100528, end: 20100530
  12. DIAZEPAM [Concomitant]
     Dosage: 10 MG, DAILY (1/D)
     Route: 048
     Dates: start: 20100601, end: 20100603
  13. HALDOL [Concomitant]
     Dosage: 15 MG, DAILY (1/D)
     Route: 048
     Dates: start: 20100429, end: 20100504
  14. HALDOL [Concomitant]
     Dosage: 10 MG, DAILY (1/D)
     Route: 048
     Dates: start: 20100505, end: 20100516
  15. HALDOL [Concomitant]
     Dosage: 5 MG, DAILY (1/D)
     Route: 048
     Dates: start: 20100601, end: 20100616
  16. AKINETON [Concomitant]
     Dosage: 4 MG, DAILY (1/D)
     Route: 048
     Dates: start: 20100430, end: 20100629
  17. PROTHIPENDYL [Concomitant]
     Dosage: 80 MG, DAILY (1/D)
     Route: 048
     Dates: start: 20100430, end: 20100527

REACTIONS (3)
  - DRUG INTERACTION [None]
  - INCREASED APPETITE [None]
  - WEIGHT INCREASED [None]
